FAERS Safety Report 18508960 (Version 1)
Quarter: 2020Q4

REPORT INFORMATION
  Report Type: Spontaneous
  Country: IN (occurrence: IN)
  Receive Date: 20201117
  Receipt Date: 20201117
  Transmission Date: 20210114
  Serious: Yes (Hospitalization, Other)
  Sender: FDA-Public Use
  Company Number: IN-LUPIN PHARMACEUTICALS INC.-2020-08688

PATIENT
  Age: 24 Year
  Sex: Male

DRUGS (1)
  1. DICLOFENAC SODIUM. [Suspect]
     Active Substance: DICLOFENAC SODIUM
     Indication: ANKYLOSING SPONDYLITIS
     Dosage: 150 MILLIGRAM (A DAY IN THREE DIVIDED DOSES)
     Route: 065
     Dates: start: 2015

REACTIONS (8)
  - Chronic kidney disease-mineral and bone disorder [Unknown]
  - Left ventricular dysfunction [Unknown]
  - End stage renal disease [Unknown]
  - Nephropathy toxic [Unknown]
  - Pulmonary oedema [Unknown]
  - Pulmonary arterial hypertension [Unknown]
  - Congestive cardiomyopathy [Unknown]
  - Kidney small [Unknown]
